FAERS Safety Report 19295983 (Version 2)
Quarter: 2021Q2

REPORT INFORMATION
  Report Type: Other
  Country: DE (occurrence: DE)
  Receive Date: 20210524
  Receipt Date: 20210625
  Transmission Date: 20210717
  Serious: Yes (Death)
  Sender: FDA-Public Use
  Company Number: DE-ROCHE-2834573

PATIENT
  Age: 44 Year
  Sex: Female

DRUGS (4)
  1. VEMURAFENIB. [Suspect]
     Active Substance: VEMURAFENIB
     Indication: METASTATIC MALIGNANT MELANOMA
     Dosage: UNK
     Route: 065
  2. COBIMETINIB. [Suspect]
     Active Substance: COBIMETINIB
     Indication: METASTATIC MALIGNANT MELANOMA
     Dosage: UNK
     Route: 065
  3. PACLITAXEL. [Suspect]
     Active Substance: PACLITAXEL
     Indication: METASTATIC MALIGNANT MELANOMA
     Dosage: UNK
     Route: 065
  4. CARBOPLATIN. [Suspect]
     Active Substance: CARBOPLATIN
     Indication: METASTATIC MALIGNANT MELANOMA
     Dosage: UNK
     Route: 065

REACTIONS (3)
  - Malignant neoplasm progression [Fatal]
  - Drug ineffective [Unknown]
  - Metastatic malignant melanoma [Fatal]
